FAERS Safety Report 7824353-7 (Version None)
Quarter: 2011Q4

REPORT INFORMATION
  Report Type: 
  Country: None (occurrence: None)
  Receive Date: 20111014
  Receipt Date: 20111011
  Transmission Date: 20120403
  Serious: Yes (Other)
  Sender: FDA-Public Use
  Company Number: 201111031

PATIENT
  Age: 15 Year
  Sex: Male

DRUGS (1)
  1. BACLOFEN [Suspect]
     Indication: MUSCLE SPASTICITY
     Dosage: 185 MCG, DAILY, INTRATHECAL
     Route: 037

REACTIONS (3)
  - INFECTION [None]
  - IMPLANT SITE ULCER [None]
  - WOUND DEHISCENCE [None]
